FAERS Safety Report 8802713 (Version 7)
Quarter: 2014Q2

REPORT INFORMATION
  Report Type: Spontaneous
  Country: US (occurrence: US)
  Receive Date: 20120921
  Receipt Date: 20140411
  Transmission Date: 20141212
  Serious: Yes (Hospitalization, Other)
  Sender: FDA-Public Use
  Company Number: US-009507513-1201USA00254

PATIENT
  Sex: Female
  Weight: 62.13 kg

DRUGS (5)
  1. FOSAMAX [Suspect]
     Indication: OSTEOPOROSIS
     Dosage: 70 MG, WKLY
     Route: 048
     Dates: start: 200510, end: 200810
  2. FOSAMAX PLUS D [Suspect]
     Dosage: 70 MG, UNK
     Route: 048
  3. SPIRIVA [Concomitant]
     Dosage: 18 MICROGRAM, QD
     Route: 055
  4. CALCIUM (UNSPECIFIED) [Concomitant]
     Dosage: UNK, QD
     Dates: start: 2000
  5. FLONASE [Concomitant]
     Indication: RHINITIS ALLERGIC

REACTIONS (70)
  - Femur fracture [Not Recovered/Not Resolved]
  - Surgery [Unknown]
  - Surgery [Unknown]
  - Impaired healing [Not Recovered/Not Resolved]
  - Small intestinal resection [Unknown]
  - Colostomy [Unknown]
  - Cholecystectomy [Unknown]
  - Hyponatraemia [Unknown]
  - Respiratory distress [Unknown]
  - Small intestine gangrene [Recovered/Resolved with Sequelae]
  - Anaemia postoperative [Recovered/Resolved]
  - Atrial fibrillation [Unknown]
  - Small intestinal resection [Unknown]
  - Sepsis [Recovering/Resolving]
  - Proctitis [Recovering/Resolving]
  - Stress cardiomyopathy [Recovering/Resolving]
  - Electrolyte imbalance [Recovered/Resolved]
  - Loss of consciousness [Recovered/Resolved]
  - Hypokinesia [Unknown]
  - Cardiac failure congestive [Unknown]
  - Hypokalaemia [Unknown]
  - Thrombocytopenia [Unknown]
  - Syncope [Unknown]
  - Anxiety [Unknown]
  - Depression [Unknown]
  - Anaemia [Unknown]
  - Pleural effusion [Unknown]
  - Fracture [Unknown]
  - Upper limb fracture [Unknown]
  - Dental implantation [Unknown]
  - Hypothyroidism [Unknown]
  - Fall [Unknown]
  - Fall [Unknown]
  - Adverse event [Unknown]
  - Joint dislocation [Recovering/Resolving]
  - Osteoarthritis [Unknown]
  - Pulmonary mass [Unknown]
  - Hypertension [Unknown]
  - Dyspnoea [Unknown]
  - Scar pain [Unknown]
  - Fall [Unknown]
  - Emphysema [Unknown]
  - Hypercholesterolaemia [Unknown]
  - Thyroid neoplasm [Unknown]
  - Urinary incontinence [Unknown]
  - Bronchitis [Recovered/Resolved]
  - Osteopenia [Unknown]
  - Appendicectomy [Unknown]
  - Osteoarthritis [Unknown]
  - Intervertebral disc protrusion [Unknown]
  - Wound [Unknown]
  - Laparotomy [Unknown]
  - Head banging [Unknown]
  - Eye contusion [Unknown]
  - Small intestinal obstruction [Unknown]
  - Hydronephrosis [Unknown]
  - Vascular access complication [Recovered/Resolved]
  - Orthostatic hypertension [Unknown]
  - Interstitial lung disease [Unknown]
  - Ejection fraction abnormal [Unknown]
  - Mitral valve incompetence [Unknown]
  - Carotid artery stenosis [Unknown]
  - Abdominal pain [Unknown]
  - Neck pain [Unknown]
  - Arthralgia [Unknown]
  - Myalgia [Unknown]
  - Arthralgia [Unknown]
  - Asbestosis [Unknown]
  - Hysterectomy [Unknown]
  - Liver function test abnormal [Unknown]
